FAERS Safety Report 24463115 (Version 1)
Quarter: 2024Q4

REPORT INFORMATION
  Report Type: Spontaneous
  Country: GB (occurrence: GB)
  Receive Date: 20241018
  Receipt Date: 20241018
  Transmission Date: 20250115
  Serious: Yes (Other)
  Sender: BAXTER
  Company Number: GB-BAXTER-2024BAX025934

PATIENT
  Age: 30 Year
  Sex: Female

DRUGS (1)
  1. POTASSIUM CHLORIDE [Suspect]
     Active Substance: POTASSIUM CHLORIDE
     Dosage: (40 MMOL K IN 1 L 0.9% NACL) UNSPECIFIED DOSE AND FREQUENCY (START DATE/TIME: 12-SEP-2024 16:39, STO
     Route: 041
     Dates: start: 20240912, end: 20240913

REACTIONS (7)
  - Melaena [Recovering/Resolving]
  - Haematochezia [Recovering/Resolving]
  - Unresponsive to stimuli [Recovering/Resolving]
  - Chest pain [Recovering/Resolving]
  - Faeces discoloured [Recovering/Resolving]
  - Pallor [Recovering/Resolving]
  - Abdominal distension [Recovering/Resolving]

NARRATIVE: CASE EVENT DATE: 20240912
